FAERS Safety Report 9117336 (Version 9)
Quarter: 2014Q1

REPORT INFORMATION
  Report Type: Report from Study
  Country: DE (occurrence: DE)
  Receive Date: 20130208
  Receipt Date: 20140326
  Transmission Date: 20141002
  Serious: Yes (Hospitalization, Other)
  Sender: FDA-Public Use
  Company Number: PHHY2012DE084313

PATIENT
  Age: 54 Year
  Sex: Male
  Weight: 84 kg

DRUGS (16)
  1. ICL670A [Suspect]
     Indication: MYELODYSPLASTIC SYNDROME
     Dosage: 500 MG, QD
     Route: 048
     Dates: start: 20100429, end: 20100722
  2. ICL670A [Suspect]
     Indication: IRON OVERLOAD
     Dosage: 1000 MG, QD
     Route: 048
     Dates: start: 20100723, end: 20101015
  3. ICL670A [Suspect]
     Dosage: 500 MG, QD
     Route: 048
     Dates: start: 20101027, end: 20111211
  4. ICL670A [Suspect]
     Route: 048
     Dates: start: 20111212, end: 20111216
  5. ICL670A [Suspect]
     Dosage: 500 MG, QD
     Dates: start: 20111217, end: 20111228
  6. LANTUS [Concomitant]
     Dosage: 10 MG, UNK
  7. ACTRAPID HM//INSULIN HUMAN [Concomitant]
  8. PRADAXA [Concomitant]
     Indication: CARDIAC FAILURE CONGESTIVE
     Dosage: 110 MG, PER DAY
     Route: 048
     Dates: start: 20120909
  9. ACE INHIBITORS [Concomitant]
     Dosage: UNK UKN, UNK
  10. RANITIC [Concomitant]
     Indication: DYSPEPSIA
     Dosage: 150 MG, QD
     Route: 048
     Dates: start: 20070816
  11. RAMIPRIL [Concomitant]
     Indication: HYPERTENSION
     Dosage: 20 MG, QD, THERAPY STOPPED ON AN UNKNOIWN DATE
     Route: 048
     Dates: start: 20070816
  12. RAMIPRIL [Concomitant]
     Dosage: 10 MG, PER DAY
     Route: 048
     Dates: start: 20090917
  13. BLOOD TRANSFUSION, AUXILIARY PRODUCTS [Concomitant]
     Dates: start: 200806
  14. INSULIN [Concomitant]
     Indication: DIABETES MELLITUS
     Dates: start: 2006
  15. BISOPROLOL [Concomitant]
     Dosage: 2.5 MG, PER DAY
  16. ERYTHROCYTES [Concomitant]

REACTIONS (27)
  - Viral infection [Unknown]
  - General physical health deterioration [Recovered/Resolved]
  - Circulatory collapse [Recovered/Resolved]
  - Haematoma [Recovered/Resolved]
  - Impaired healing [Recovered/Resolved]
  - Diarrhoea [Recovered/Resolved]
  - Hydrocele [Unknown]
  - Testicular swelling [Recovering/Resolving]
  - Testicular pain [Recovering/Resolving]
  - Erythema [Recovering/Resolving]
  - Skin induration [Unknown]
  - Epididymitis [Recovered/Resolved]
  - Glomerular filtration rate decreased [Unknown]
  - Creatinine renal clearance decreased [Recovered/Resolved]
  - Blood urea increased [Not Recovered/Not Resolved]
  - Blood creatinine increased [Unknown]
  - Atrial fibrillation [Unknown]
  - Nausea [Recovered/Resolved]
  - Blood glucose abnormal [Not Recovered/Not Resolved]
  - Alanine aminotransferase increased [Not Recovered/Not Resolved]
  - Troponin increased [Unknown]
  - Aspartate aminotransferase increased [Unknown]
  - Lipase increased [Unknown]
  - Activated partial thromboplastin time prolonged [Unknown]
  - Anaemia [Unknown]
  - Blood creatine phosphokinase increased [Unknown]
  - Prothrombin time prolonged [Unknown]
